FAERS Safety Report 6874719-7 (Version None)
Quarter: 2010Q3

REPORT INFORMATION
  Report Type: 
  Country: None (occurrence: None)
  Receive Date: 20100726
  Receipt Date: 20100709
  Transmission Date: 20110219
  Serious: Yes (Other)
  Sender: FDA-Public Use
  Company Number: CIP10001357

PATIENT
  Age: 65 Year
  Sex: Male

DRUGS (2)
  1. ACTONEL [Suspect]
     Dosage: 35 MG ONCE A WEEK, ORAL
     Route: 048
     Dates: start: 20090801, end: 20100101
  2. CALTRATE /00108001/ (CALCIUM CARBONATE) [Concomitant]

REACTIONS (8)
  - ARTHRALGIA [None]
  - DIARRHOEA [None]
  - HEADACHE [None]
  - JAW DISORDER [None]
  - MYALGIA [None]
  - PAIN [None]
  - TOOTH ABSCESS [None]
  - TOOTH FRACTURE [None]
